FAERS Safety Report 9807405 (Version 6)
Quarter: 2015Q2

REPORT INFORMATION
  Report Type: Spontaneous
  Country: FR (occurrence: FR)
  Receive Date: 20140110
  Receipt Date: 20150519
  Transmission Date: 20150821
  Serious: Yes (Other)
  Sender: FDA-Public Use
  Company Number: FR-AMGEN-FRASP2013062489

PATIENT
  Age: 44 Year
  Sex: Female
  Weight: 53 kg

DRUGS (47)
  1. NEUPOGEN [Suspect]
     Active Substance: FILGRASTIM
     Dosage: 30MU VIAL UTERINE WASH, ONE TIME DOSE
     Route: 065
     Dates: start: 20130724
  2. FLAXSEED [Concomitant]
     Active Substance: FLAX SEED
     Dosage: 1000 MG, UNK
     Dates: start: 2012
  3. VITAMIN C [Concomitant]
     Active Substance: ASCORBIC ACID
     Dosage: 500 MG, UNK
     Dates: start: 2012, end: 20130903
  4. PENTOXIFYLLINE. [Concomitant]
     Active Substance: PENTOXIFYLLINE
     Dosage: 400 MG, UNK
     Dates: start: 2011, end: 20130812
  5. CORTANCYL [Concomitant]
     Active Substance: PREDNISONE
     Dosage: 20 + 15 MG
     Dates: start: 20130727, end: 20130913
  6. CORTANCYL [Concomitant]
     Active Substance: PREDNISONE
     Dosage: 10 MG, UNK
     Dates: start: 20131022, end: 20131023
  7. CORTANCYL [Concomitant]
     Active Substance: PREDNISONE
     Dosage: 5 MG, UNK
     Dates: start: 20131024, end: 20131026
  8. UVEDOSE [Concomitant]
     Active Substance: CHOLECALCIFEROL
     Dosage: 100000 IU, ONE TIME DOSE
     Dates: start: 20130721, end: 20130721
  9. CRINONE [Concomitant]
     Active Substance: PROGESTERONE
     Dosage: 8 %, BID
     Route: 061
     Dates: start: 20130810, end: 20130813
  10. CRINONE [Concomitant]
     Active Substance: PROGESTERONE
     Dosage: 8 %, BID (TAPER SLOWLY FROM OCTOBER?)
     Route: 061
     Dates: start: 20130924, end: 20131018
  11. NEUPOGEN [Suspect]
     Active Substance: FILGRASTIM
     Dosage: 60 MUG, UNK
     Route: 058
     Dates: start: 20130728, end: 20130813
  12. NEUPOGEN [Suspect]
     Active Substance: FILGRASTIM
     Dosage: 45 MUG, UNK
     Route: 058
     Dates: start: 20130917, end: 20131004
  13. IRON [Concomitant]
     Active Substance: IRON
     Dosage: 18 MG, UNK
     Dates: start: 2011
  14. DUPHASTON [Concomitant]
     Active Substance: DYDROGESTERONE
     Dosage: 10 MG, 2-0-2 VAGINALLY
     Route: 067
     Dates: start: 20130726, end: 20130809
  15. CRINONE [Concomitant]
     Active Substance: PROGESTERONE
     Dosage: 8 %, QD
     Route: 061
     Dates: start: 20130917, end: 20130923
  16. VITAMIN D3 [Concomitant]
     Active Substance: CHOLECALCIFEROL
     Dosage: 2000 IU, UNK
     Dates: start: 2012
  17. LOVENOX [Concomitant]
     Active Substance: ENOXAPARIN SODIUM
     Dosage: 20 IU, UNK
     Dates: start: 20130712
  18. CORTANCYL [Concomitant]
     Active Substance: PREDNISONE
     Dosage: 15 + 5 MG, UNK
     Dates: start: 20131015, end: 20131017
  19. OROMONE [Concomitant]
     Active Substance: ESTRADIOL
     Dosage: 2MG, 1-1-1 VAGINALLY
     Route: 067
     Dates: start: 20130716, end: 20130726
  20. PROGESTERONE RETARD PHARLON [Concomitant]
     Dosage: 150 MG, UNK
     Dates: start: 20130726, end: 20130730
  21. PROGESTERONE RETARD PHARLON [Concomitant]
     Dosage: 200 MG, (TAPER SLOWLY FROM OCTOVER?)
     Dates: start: 20130731, end: 20131008
  22. FOLIC ACID. [Concomitant]
     Active Substance: FOLIC ACID
     Dosage: 800 MUG, UNK
     Dates: start: 2011
  23. LOVENOX [Concomitant]
     Active Substance: ENOXAPARIN SODIUM
     Dosage: 40 IU, UNK
     Dates: start: 20130712
  24. PIO                                /01460202/ [Concomitant]
     Dosage: 150 MG, UNK
     Dates: start: 20131009, end: 20131012
  25. NEUPOGEN [Suspect]
     Active Substance: FILGRASTIM
     Dosage: 45 MUG, UNK
     Route: 058
     Dates: start: 20130814, end: 20130822
  26. OROMONE [Concomitant]
     Active Substance: ESTRADIOL
     Dosage: 2 MG, 1-0-1 VAGINALLY
     Route: 067
     Dates: start: 20130727, end: 20131011
  27. UTROGESTAN [Concomitant]
     Active Substance: PROGESTERONE
     Dosage: 200 MG, BID (TAPER SLOWLY FROM OCTOBER?)
     Route: 067
     Dates: start: 20130911, end: 20131001
  28. PIO                                /01460202/ [Concomitant]
     Dosage: 50 MG, UNK
     Dates: start: 20131013, end: 20131016
  29. NEUPOGEN [Suspect]
     Active Substance: FILGRASTIM
     Dosage: 60 MUG, UNK
     Route: 058
     Dates: start: 20130905, end: 20130916
  30. MAGNESIUM MALATE [Concomitant]
     Dosage: 72 MG, UNK
     Dates: start: 2012
  31. EGCG [Concomitant]
     Dosage: 400 MG, UNK
     Dates: start: 20130307, end: 20130726
  32. THAIS SEPT [Concomitant]
     Dosage: 2 PATCHES, CHANGING EVERY 3 DAYS
     Route: 062
     Dates: start: 20130713, end: 20131018
  33. CORTANCYL [Concomitant]
     Active Substance: PREDNISONE
     Dosage: 15 MG, UNK
     Dates: start: 20131018, end: 20131021
  34. CRINONE [Concomitant]
     Active Substance: PROGESTERONE
     Dosage: 8 %, BID
     Route: 061
     Dates: start: 20130814, end: 20130821
  35. NEUPOGEN [Suspect]
     Active Substance: FILGRASTIM
     Indication: PRODUCT USED FOR UNKNOWN INDICATION
     Dosage: 30MU VIAL UTERINE WASH, ONE TIME DOSE
     Route: 065
     Dates: start: 20130720, end: 20131003
  36. NEUPOGEN [Suspect]
     Active Substance: FILGRASTIM
     Dosage: 75 MUG, UNK
     Route: 058
     Dates: start: 20130823, end: 20130904
  37. ZINC [Concomitant]
     Active Substance: ZINC\ZINC CHLORIDE
     Dosage: EVERY 2 DAYS
     Route: 048
     Dates: start: 20130505, end: 20130905
  38. CORTANCYL [Concomitant]
     Active Substance: PREDNISONE
     Dosage: 25 MG, UNK
     Dates: start: 20130713, end: 20130726
  39. CORTANCYL [Concomitant]
     Active Substance: PREDNISONE
     Dosage: 15 +10 MG (WILL TAPER AS PROGESTERONE TAPERS)
     Dates: start: 20130914, end: 20131014
  40. CORTANCYL [Concomitant]
     Active Substance: PREDNISONE
     Dosage: 2.5 MG, UNK
     Dates: start: 20131027, end: 20131029
  41. COTRIMOXAZOLE [Concomitant]
     Active Substance: SULFAMETHOXAZOLE\TRIMETHOPRIM
     Dosage: 800/160 X2 , DAILY
     Dates: start: 20140411, end: 20140417
  42. CALCIUM CITRATE MALATE [Concomitant]
     Active Substance: CALCIUM CITRATE MALATE
     Dosage: 1000 MG, UNK
     Dates: start: 2013
  43. TOCOPHEROL TEVA [Concomitant]
     Dosage: 500 MG, UNK
     Dates: start: 2011, end: 20130813
  44. FAT EMULSION NOS [Concomitant]
     Active Substance: EGG PHOSPHOLIPIDS\SAFFLOWER OIL\SOYBEAN OIL
     Dosage: 20 %, Q2WK
     Route: 042
     Dates: start: 20130725
  45. UTROGESTAN [Concomitant]
     Active Substance: PROGESTERONE
     Dosage: 200 MG, QID
     Route: 067
     Dates: start: 20130731, end: 20130910
  46. VALACICLOVIR [Concomitant]
     Active Substance: VALACYCLOVIR HYDROCHLORIDE
     Indication: PROPHYLAXIS
     Dosage: 500 UNK, UNK
     Route: 048
     Dates: start: 20140328, end: 20140425
  47. CRINONE [Concomitant]
     Active Substance: PROGESTERONE
     Dosage: 8 %, BID
     Route: 061
     Dates: start: 20130822

REACTIONS (9)
  - Pre-eclampsia [Unknown]
  - Skin discolouration [Unknown]
  - Herpes virus infection [Unknown]
  - Beta haemolytic streptococcal infection [Unknown]
  - Dental implantation [Unknown]
  - Haemorrhage in pregnancy [Unknown]
  - Postpartum haemorrhage [Unknown]
  - Induced labour [Unknown]
  - Sinusitis [Unknown]

NARRATIVE: CASE EVENT DATE: 20131206
